FAERS Safety Report 9457763 (Version 1)
Quarter: 2013Q3

REPORT INFORMATION
  Report Type: Report from Study
  Country: US (occurrence: US)
  Receive Date: 20130814
  Receipt Date: 20130814
  Transmission Date: 20140515
  Serious: Yes (Hospitalization)
  Sender: FDA-Public Use
  Company Number: US-ROCHE-1261399

PATIENT
  Sex: Male

DRUGS (10)
  1. AVASTIN [Suspect]
     Indication: MACULAR DEGENERATION
     Route: 065
     Dates: end: 20121016
  2. CALCITRIOL [Concomitant]
     Route: 065
  3. FISH OIL [Concomitant]
     Route: 065
  4. LISINOPRIL [Concomitant]
     Route: 065
  5. LORATADINE [Concomitant]
     Route: 065
  6. PLAVIX [Concomitant]
     Route: 065
  7. PRAVASTATIN [Concomitant]
     Route: 065
  8. RECLAST [Concomitant]
     Route: 042
  9. VITAMIN B12 [Concomitant]
  10. FOLIC ACID [Concomitant]
     Route: 065

REACTIONS (2)
  - Fall [Unknown]
  - Arthralgia [Unknown]
